FAERS Safety Report 23693848 (Version 1)
Quarter: 2024Q2

REPORT INFORMATION
  Report Type: Spontaneous
  Country: US (occurrence: US)
  Receive Date: 20240401
  Receipt Date: 20240401
  Transmission Date: 20240716
  Serious: No
  Sender: FDA-Public Use
  Company Number: US-BIOGEN-2024BI01250113

PATIENT
  Sex: Female

DRUGS (1)
  1. TYSABRI [Suspect]
     Active Substance: NATALIZUMAB
     Indication: Multiple sclerosis
     Route: 050
     Dates: start: 20230202

REACTIONS (7)
  - Inappropriate schedule of product administration [Unknown]
  - Discomfort [Unknown]
  - Gait inability [Unknown]
  - Aphasia [Unknown]
  - Mobility decreased [Unknown]
  - Feeling abnormal [Unknown]
  - Asthenia [Recovered/Resolved with Sequelae]
